FAERS Safety Report 4901888-8 (Version None)
Quarter: 2006Q1

REPORT INFORMATION
  Report Type: 
  Country: None (occurrence: None)
  Receive Date: 20060206
  Receipt Date: 19930701
  Transmission Date: 20060701
  Serious: Yes (Hospitalization)
  Sender: FDA-Public Use
  Company Number: FR-ABBOTT-93P-056-0066140-00

PATIENT
  Age: 19 Year
  Sex: Male

DRUGS (2)
  1. VALPROATE PONA [Suspect]
     Indication: SUICIDE ATTEMPT
     Route: 048
  2. FLUOXETINE HYDROCHLORIDE [Concomitant]
     Indication: DRUG USE FOR UNKNOWN INDICATION

REACTIONS (5)
  - BRAIN OEDEMA [None]
  - COMA [None]
  - HYPERAMMONAEMIA [None]
  - INTENTIONAL OVERDOSE [None]
  - SUICIDE ATTEMPT [None]
